FAERS Safety Report 15693253 (Version 1)
Quarter: 2018Q4

REPORT INFORMATION
  Report Type: Spontaneous
  Country: US (occurrence: US)
  Receive Date: 20181206
  Receipt Date: 20181206
  Transmission Date: 20190205
  Serious: No
  Sender: FDA-Public Use
  Company Number: US-BAYER-2018-224796

PATIENT
  Age: 77 Year
  Sex: Female
  Weight: 68 kg

DRUGS (5)
  1. CLARITIN [Suspect]
     Active Substance: LORATADINE
     Indication: NASOPHARYNGITIS
  2. DEXILANT [Concomitant]
     Active Substance: DEXLANSOPRAZOLE
  3. FLONASE [Concomitant]
     Active Substance: FLUTICASONE PROPIONATE
  4. METOPROLOL. [Concomitant]
     Active Substance: METOPROLOL
  5. CLARITIN [Suspect]
     Active Substance: LORATADINE
     Indication: HYPERSENSITIVITY
     Dosage: 1 DF, QD
     Route: 048

REACTIONS (1)
  - Sleep disorder [Not Recovered/Not Resolved]
